FAERS Safety Report 20018192 (Version 1)
Quarter: 2021Q4

REPORT INFORMATION
  Report Type: Spontaneous
  Country: JP (occurrence: JP)
  Receive Date: 20211101
  Receipt Date: 20211101
  Transmission Date: 20220303
  Serious: Yes (Hospitalization, Other)
  Sender: FDA-Public Use
  Company Number: JP-MACLEODS PHARMACEUTICALS US LTD-MAC2021033149

PATIENT

DRUGS (2)
  1. TRIAMCINOLONE [Suspect]
     Active Substance: TRIAMCINOLONE
     Indication: Metatarsalgia
     Dosage: 1 DOSAGE FORM; 10 TOTAL; INJECTION
     Route: 065
  2. BETAMETHASONE [Suspect]
     Active Substance: BETAMETHASONE
     Indication: Metatarsalgia
     Dosage: 1 DOSAGE FORM, 1 TOTAL
     Route: 065

REACTIONS (1)
  - Joint dislocation [Recovered/Resolved]
